FAERS Safety Report 6191144-5 (Version None)
Quarter: 2009Q2

REPORT INFORMATION
  Report Type: 
  Country: None (occurrence: None)
  Receive Date: 20090515
  Receipt Date: 20090512
  Transmission Date: 20091009
  Serious: Yes (Death)
  Sender: FDA-Public Use
  Company Number: JP-JNJFOC-20090500169

PATIENT
  Sex: Male
  Weight: 52 kg

DRUGS (29)
  1. DUROTEP MT PATCH [Suspect]
     Route: 062
  2. DUROTEP MT PATCH [Suspect]
     Route: 062
  3. DUROTEP MT PATCH [Suspect]
     Indication: CANCER PAIN
     Route: 062
  4. OPSO [Concomitant]
     Route: 048
  5. OPSO [Concomitant]
     Route: 048
  6. OPSO [Concomitant]
     Indication: CANCER PAIN
     Route: 048
  7. BFLUID [Concomitant]
     Route: 042
  8. PENLEIV [Concomitant]
     Route: 042
  9. PENTAZOCINE LACTATE [Concomitant]
     Route: 042
  10. PENTAZOCINE LACTATE [Concomitant]
     Indication: ANALGESIC THERAPY
     Route: 042
  11. ATARAX [Concomitant]
     Route: 042
  12. ATARAX [Concomitant]
     Indication: ANALGESIC THERAPY
     Route: 042
  13. NEOPRAMIEL [Concomitant]
     Route: 042
  14. PREDONINE [Concomitant]
     Route: 042
  15. PREDONINE [Concomitant]
     Route: 042
  16. PREDONINE [Concomitant]
     Route: 042
  17. PREDONINE [Concomitant]
     Route: 042
  18. PREDONINE [Concomitant]
     Route: 042
  19. RINDERON [Concomitant]
     Route: 042
  20. RINDERON [Concomitant]
     Route: 042
  21. GASMOTIN [Concomitant]
     Route: 048
  22. NIKORANMART [Concomitant]
     Indication: AORTIC ANEURYSM
     Route: 048
  23. AMLODIPINE [Concomitant]
     Indication: HYPERTENSION
     Route: 048
  24. LASIX [Concomitant]
     Route: 048
  25. MAGMITT [Concomitant]
     Route: 048
  26. MAGMITT [Concomitant]
     Indication: PROPHYLAXIS
     Route: 048
  27. KAMOSTAAL [Concomitant]
     Route: 048
  28. MOBIC [Concomitant]
     Indication: ANALGESIC THERAPY
     Route: 048
  29. ALLOID G [Concomitant]
     Route: 048

REACTIONS (1)
  - AORTIC ANEURYSM RUPTURE [None]
